FAERS Safety Report 5541579-6 (Version None)
Quarter: 2007Q4

REPORT INFORMATION
  Report Type: 
  Country: None (occurrence: None)
  Receive Date: 20071210
  Receipt Date: 20071205
  Transmission Date: 20080405
  Serious: Yes (Life-Threatening, Hospitalization)
  Sender: FDA-Public Use
  Company Number: PHHO2007US20127

PATIENT
  Age: 54 Year
  Sex: Male
  Weight: 87 kg

DRUGS (2)
  1. MYCOPHENOLATE MOFETIL [Suspect]
     Indication: HEART TRANSPLANT
     Dosage: 1500 MG, BID
     Route: 048
     Dates: start: 20071109
  2. NEORAL [Suspect]
     Indication: HEART TRANSPLANT
     Route: 048
     Dates: start: 20071109

REACTIONS (5)
  - CARDIAC TAMPONADE [None]
  - CHEST TUBE INSERTION [None]
  - DEEP VEIN THROMBOSIS [None]
  - HAEMORRHAGE [None]
  - SURGERY [None]
